FAERS Safety Report 5278437-0 (Version None)
Quarter: 2007Q1

REPORT INFORMATION
  Report Type: 
  Country: None (occurrence: None)
  Receive Date: 20070322
  Receipt Date: 20070309
  Transmission Date: 20070707
  Serious: Yes (Hospitalization)
  Sender: FDA-Public Use
  Company Number: 20070076 /

PATIENT
  Age: 64 Year
  Sex: Female

DRUGS (6)
  1. DEXAMETHASONE SODIUM PHOSPHATE [Suspect]
     Indication: PROPHYLAXIS OF NAUSEA AND VOMITING
     Dosage: 8 MG IV INTRAVENOUS
     Route: 042
     Dates: start: 20061208, end: 20070105
  2. INVESTIGATIONAL PRODUCT GW 679769 [Suspect]
     Indication: PROPHYLAXIS OF NAUSEA AND VOMITING
     Dates: start: 20061208, end: 20070105
  3. ONDANSETRON HCL [Suspect]
     Indication: PROPHYLAXIS OF NAUSEA AND VOMITING
     Dosage: 8 MG PER DAY ORAL
     Route: 048
     Dates: start: 20061208, end: 20070105
  4. MOXIFLOXACIN HCL [Concomitant]
  5. DOXORUBICIN HCL [Concomitant]
  6. CYCLOPHOSPHAMIDE [Concomitant]

REACTIONS (2)
  - ANAPHYLACTOID REACTION [None]
  - HYPOXIA [None]
